FAERS Safety Report 10726376 (Version 1)
Quarter: 2015Q1

REPORT INFORMATION
  Report Type: Spontaneous
  Country: US (occurrence: None)
  Receive Date: 20150120
  Receipt Date: 20150120
  Transmission Date: 20150721
  Serious: No
  Sender: FDA-Public Use
  Company Number: None

PATIENT
  Age: 74 Year
  Sex: Male
  Weight: 62.2 kg

DRUGS (4)
  1. 5-FLUROURACIL [Suspect]
     Active Substance: FLUOROURACIL
     Dates: end: 20110616
  2. BEVACIZUMAB (RHUMAB VEGF) [Suspect]
     Active Substance: BEVACIZUMAB
     Dates: end: 20110616
  3. LEUCOVORIN CALCIUM. [Suspect]
     Active Substance: LEUCOVORIN CALCIUM
     Dates: start: 20110616
  4. ELOXATIN [Suspect]
     Active Substance: OXALIPLATIN
     Dates: end: 20110616

REACTIONS (1)
  - Weight decreased [None]

NARRATIVE: CASE EVENT DATE: 20110628
